FAERS Safety Report 10611137 (Version 4)
Quarter: 2017Q2

REPORT INFORMATION
  Report Type: Spontaneous
  Country: JP (occurrence: JP)
  Receive Date: 20141126
  Receipt Date: 20170421
  Transmission Date: 20170829
  Serious: Yes (Life-Threatening, Hospitalization)
  Sender: FDA-Public Use
  Company Number: JP-UCBSA-2014019057

PATIENT
  Age: 70 Year
  Sex: Female
  Weight: 37.9 kg

DRUGS (17)
  1. NEODOPASTON [Concomitant]
     Active Substance: CARBIDOPA\LEVODOPA
     Dosage: 500 MG DAILY DOSE
     Route: 048
  2. INTEBAN SP [Concomitant]
     Dosage: 75 MG DAILY DOSE
     Route: 048
  3. REQUIP [Concomitant]
     Active Substance: ROPINIROLE HYDROCHLORIDE
     Dosage: 16 MG DAILY DOSE
     Route: 048
  4. FOLIAMIN [Concomitant]
     Active Substance: FOLIC ACID
     Indication: RHEUMATOID ARTHRITIS
     Dosage: UNK
     Route: 048
     Dates: start: 2014, end: 201410
  5. AZULFIDINE EN-TABS [Concomitant]
     Active Substance: SULFASALAZINE
     Indication: RHEUMATOID ARTHRITIS
     Dosage: 1000 MG DAILY DOSE
     Route: 048
     Dates: start: 2014
  6. SYMMETREL [Concomitant]
     Active Substance: AMANTADINE HYDROCHLORIDE
     Dosage: 150 MG DAILY DOSE
     Route: 048
  7. AZILSARTAN [Concomitant]
     Active Substance: AZILSARTAN KAMEDOXOMIL
     Dosage: 40 MG DAILY DOSE
     Route: 048
  8. EDIROL [Concomitant]
     Active Substance: ELDECALCITOL
     Dosage: 0.5 MICROGRAM DAILY DOSE
     Route: 048
  9. TRERIEF [Concomitant]
     Active Substance: ZONISAMIDE
     Dosage: 25 MG DAILY DOSE
     Route: 048
  10. CIMZIA [Suspect]
     Active Substance: CERTOLIZUMAB PEGOL
     Indication: RHEUMATOID ARTHRITIS
     Dosage: 400 MG, 4X/WEEK; STRENGTH: 200 MG
     Route: 058
     Dates: start: 20130827, end: 201410
  11. METOLATE [Suspect]
     Active Substance: METHOTREXATE
     Indication: RHEUMATOID ARTHRITIS
     Dosage: DOSE: 4 MG
     Route: 048
     Dates: start: 2014, end: 201410
  12. BAYASPIRIN [Concomitant]
     Active Substance: ASPIRIN
     Dosage: 100 MG DAILY DOSE
     Route: 048
  13. ADALAT [Concomitant]
     Active Substance: NIFEDIPINE
     Dosage: 40 MG DAILY DOSE
     Route: 048
  14. FERROMIA [Concomitant]
     Active Substance: FERROUS CITRATE
     Dosage: 200 MG DAILY DOSE
     Route: 048
  15. REBAMIPIDE [Concomitant]
     Active Substance: REBAMIPIDE
     Dosage: 300 MG DAILY DOSE
     Route: 048
  16. ACTONEL [Concomitant]
     Active Substance: RISEDRONATE SODIUM
     Dosage: UNK
     Route: 048
  17. GASTER [Concomitant]
     Active Substance: FAMOTIDINE
     Dosage: 20 MG DAILY DOSE
     Route: 048

REACTIONS (2)
  - Necrotising fasciitis [Recovering/Resolving]
  - Anaemia [Recovering/Resolving]

NARRATIVE: CASE EVENT DATE: 20141010
